FAERS Safety Report 10232419 (Version 2)
Quarter: 2014Q2

REPORT INFORMATION
  Report Type: Spontaneous
  Country: US (occurrence: US)
  Receive Date: 20140612
  Receipt Date: 20140627
  Transmission Date: 20141212
  Serious: No
  Sender: FDA-Public Use
  Company Number: US-009507513-1406USA003152

PATIENT
  Age: 43 Year
  Sex: Female
  Weight: 58.96 kg

DRUGS (4)
  1. NUVARING [Suspect]
     Indication: CONTRACEPTION
     Dosage: ONE RING/ ^THREE WEEKS^
     Route: 067
  2. NUVARING [Suspect]
     Dosage: ONE RING/ ^THREE WEEKS^
     Route: 067
     Dates: start: 2007, end: 2009
  3. FLONASE [Concomitant]
     Dosage: UNK
  4. ZYRTEC-D [Concomitant]
     Dosage: UNK

REACTIONS (9)
  - Menorrhagia [Not Recovered/Not Resolved]
  - Device expulsion [Unknown]
  - Device expulsion [Unknown]
  - Device expulsion [Unknown]
  - Device expulsion [Unknown]
  - Incorrect dosage administered [Unknown]
  - Incorrect dosage administered [Unknown]
  - Incorrect dosage administered [Unknown]
  - Incorrect dosage administered [Unknown]
